FAERS Safety Report 15179203 (Version 1)
Quarter: 2018Q3

REPORT INFORMATION
  Report Type: Spontaneous
  Country: IL (occurrence: IL)
  Receive Date: 20180723
  Receipt Date: 20180723
  Transmission Date: 20181010
  Serious: Yes (Hospitalization, Other)
  Sender: FDA-Public Use
  Company Number: IL-ROCHE-2157788

PATIENT
  Age: 33 Year
  Sex: Female

DRUGS (12)
  1. CYCLOPHOSPHAMIDE. [Concomitant]
     Active Substance: CYCLOPHOSPHAMIDE
  2. ETOPOSIDE. [Concomitant]
     Active Substance: ETOPOSIDE
  3. METHYLPREDNISOLONE. [Concomitant]
     Active Substance: METHYLPREDNISOLONE
  4. GEMCITABINE [Concomitant]
     Active Substance: GEMCITABINE\GEMCITABINE HYDROCHLORIDE
  5. DOXORUBICIN [Concomitant]
     Active Substance: DOXORUBICIN
  6. CISPLATINUM [Concomitant]
     Active Substance: CISPLATIN
  7. IFOSFAMIDE. [Concomitant]
     Active Substance: IFOSFAMIDE
  8. VINORELBINE [Concomitant]
     Active Substance: VINORELBINE\VINORELBINE TARTRATE
  9. CYTARABINE. [Concomitant]
     Active Substance: CYTARABINE
  10. RITUXIMAB. [Suspect]
     Active Substance: RITUXIMAB
     Indication: DIFFUSE LARGE B-CELL LYMPHOMA
     Route: 065
  11. VINCRISTINE [Concomitant]
     Active Substance: VINCRISTINE
  12. PREDNISONE. [Concomitant]
     Active Substance: PREDNISONE

REACTIONS (3)
  - Gastrointestinal haemorrhage [Unknown]
  - Embolism venous [Unknown]
  - Hypertension [Unknown]
